FAERS Safety Report 25753310 (Version 1)
Quarter: 2025Q3

REPORT INFORMATION
  Report Type: Spontaneous
  Country: US (occurrence: US)
  Receive Date: 20250903
  Receipt Date: 20250903
  Transmission Date: 20251021
  Serious: Yes (Other)
  Sender: NOVO NORDISK
  Company Number: US-NOVOPROD-1506820

PATIENT
  Age: 62 Year

DRUGS (9)
  1. OZEMPIC [Suspect]
     Active Substance: SEMAGLUTIDE
     Indication: Type 2 diabetes mellitus
     Dates: start: 202109, end: 202111
  2. OZEMPIC [Suspect]
     Active Substance: SEMAGLUTIDE
     Indication: Cardiovascular event prophylaxis
  3. OZEMPIC [Suspect]
     Active Substance: SEMAGLUTIDE
     Indication: Obesity
  4. SAXENDA [Suspect]
     Active Substance: LIRAGLUTIDE
     Indication: Obesity
     Dates: start: 202111, end: 202112
  5. SAXENDA [Suspect]
     Active Substance: LIRAGLUTIDE
     Indication: Type 2 diabetes mellitus
  6. SAXENDA [Suspect]
     Active Substance: LIRAGLUTIDE
     Indication: Cardiovascular event prophylaxis
  7. TRULICITY [Suspect]
     Active Substance: DULAGLUTIDE
     Indication: Type 2 diabetes mellitus
     Dates: start: 202001, end: 202310
  8. TRULICITY [Suspect]
     Active Substance: DULAGLUTIDE
     Indication: Cardiovascular event prophylaxis
  9. TRULICITY [Suspect]
     Active Substance: DULAGLUTIDE
     Indication: Obesity

REACTIONS (2)
  - Intestinal obstruction [Not Recovered/Not Resolved]
  - Impaired gastric emptying [Not Recovered/Not Resolved]
